FAERS Safety Report 7818032-X (Version None)
Quarter: 2011Q4

REPORT INFORMATION
  Report Type: 
  Country: None (occurrence: None)
  Receive Date: 20111017
  Receipt Date: 20111003
  Transmission Date: 20120403
  Serious: Yes (Hospitalization, Other)
  Sender: FDA-Public Use
  Company Number: US-ELI_LILLY_AND_COMPANY-US201104000297

PATIENT
  Sex: Female

DRUGS (32)
  1. FORTEO [Suspect]
     Dosage: 20 UG, QD
     Dates: start: 20110519
  2. CORDARONE [Concomitant]
     Dosage: 200 MG, QD
  3. ZANTAC [Concomitant]
     Dosage: 150 MG, BID
  4. METRONIDAZOLE [Concomitant]
  5. COUMADIN [Concomitant]
     Indication: DEEP VEIN THROMBOSIS
     Dosage: 0.5 MG, 3/W
  6. INSULIN [Concomitant]
     Dosage: UNK, TID
  7. ALDACTONE [Concomitant]
     Dosage: 25 MG, QD
  8. MEGESTROL ACETATE [Concomitant]
     Indication: DECREASED APPETITE
  9. TRAMADOL HCL [Concomitant]
     Dosage: 50 MG, TID
  10. VITAMIN D [Concomitant]
     Dosage: 2000 IU, QD
  11. FORTEO [Suspect]
     Indication: OSTEOPOROSIS
     Dosage: 20 UG, QD
     Dates: start: 20110308
  12. ASPIRIN [Concomitant]
     Dosage: 81 MG, UNK
  13. XOPENEX [Concomitant]
  14. IMDUR [Concomitant]
     Dosage: 30 MG, QD
  15. CARVEDILOL [Concomitant]
     Dosage: UNK, BID
  16. PREDNISONE [Concomitant]
     Indication: TEMPORAL ARTERITIS
     Dosage: 5 MG, 4/W
  17. RAMIPRIL [Concomitant]
     Dosage: 2.5 MG, 3/W
  18. FORTEO [Suspect]
     Dosage: 20 UG, QD
  19. LEVEMIR [Concomitant]
     Dosage: 5 MG, QD
     Route: 058
  20. COUMADIN [Concomitant]
     Dosage: 7.5 MG, 4/W
  21. POTASSIUM CHLORIDE [Concomitant]
     Dosage: 10 MEQ, QD
  22. BUMEX [Concomitant]
     Dosage: 1 MG, QD
  23. FORTEO [Suspect]
     Dosage: 20 UG, QD
  24. FORTEO [Suspect]
     Dosage: 20 UG, QD
  25. FORTEO [Suspect]
     Dosage: 20 UG, QD
  26. PREDNISONE [Concomitant]
     Dosage: 7.5 MG, QD
  27. CRESTOR [Concomitant]
     Dosage: 10 MG, QD
  28. TRICOR [Concomitant]
  29. ULTRAM [Concomitant]
  30. BUSPIRONE HCL [Concomitant]
     Dosage: 10 MG, TID
  31. NOVOLIN R [Concomitant]
  32. VITAMIN B-12 [Concomitant]

REACTIONS (20)
  - RENAL FAILURE ACUTE [None]
  - DEVICE RELATED INFECTION [None]
  - PULMONARY OEDEMA [None]
  - HYPOPHAGIA [None]
  - MOBILITY DECREASED [None]
  - DRUG DOSE OMISSION [None]
  - DEHYDRATION [None]
  - INFECTION [None]
  - BLOOD PRESSURE DECREASED [None]
  - VOMITING [None]
  - ABASIA [None]
  - ELECTROLYTE IMBALANCE [None]
  - ILL-DEFINED DISORDER [None]
  - PYREXIA [None]
  - SKIN FRAGILITY [None]
  - URINARY TRACT INFECTION [None]
  - VASCULAR ACCESS COMPLICATION [None]
  - ASTHENIA [None]
  - DYSPNOEA [None]
  - CHILLS [None]
